FAERS Safety Report 19098886 (Version 2)
Quarter: 2021Q2

REPORT INFORMATION
  Report Type: Spontaneous
  Country: US (occurrence: US)
  Receive Date: 20210406
  Receipt Date: 20210501
  Transmission Date: 20210717
  Serious: No
  Sender: FDA-Public Use
  Company Number: US-ASTRAZENECA-2021A162777

PATIENT
  Sex: Female
  Weight: 104.8 kg

DRUGS (2)
  1. BYDUREON BCISE [Suspect]
     Active Substance: EXENATIDE
     Indication: DIABETES MELLITUS
     Route: 058
     Dates: start: 202101
  2. BYDUREON BCISE [Suspect]
     Active Substance: EXENATIDE
     Indication: WEIGHT DECREASED
     Route: 058
     Dates: start: 202101

REACTIONS (5)
  - Weight increased [Unknown]
  - Product dose omission issue [Unknown]
  - Device delivery system issue [Unknown]
  - Injection site nodule [Recovered/Resolved]
  - Wrong technique in product usage process [Unknown]
